FAERS Safety Report 5866446-X (Version None)
Quarter: 2008Q3

REPORT INFORMATION
  Report Type: 
  Country: None (occurrence: None)
  Receive Date: 20080902
  Receipt Date: 20080827
  Transmission Date: 20090109
  Serious: Yes (Hospitalization)
  Sender: FDA-Public Use
  Company Number: US-WYE-H03802808

PATIENT
  Sex: Male
  Weight: 78.09 kg

DRUGS (8)
  1. TORISEL [Suspect]
     Indication: RENAL CELL CARCINOMA
     Route: 065
     Dates: start: 20080201
  2. TORISEL [Suspect]
     Dosage: UNKNOWN
     Route: 042
  3. ZOSYN [Concomitant]
  4. DURAGESIC-100 [Concomitant]
     Indication: PAIN
     Dosage: 50 MCG - FREQUENCY NOT SPECIFIED
     Route: 061
     Dates: start: 20080229, end: 20080307
  5. DURAGESIC-100 [Concomitant]
     Dosage: 100 MCG - FREQUENCY NOT SPECIFIED
     Route: 061
     Dates: start: 20080307
  6. ATIVAN [Concomitant]
     Indication: INSOMNIA
  7. PROCRIT [Concomitant]
     Dosage: UNKNOWN
     Route: 058
  8. LORTAB [Concomitant]

REACTIONS (1)
  - DELIRIUM [None]
